FAERS Safety Report 9662840 (Version 1)
Quarter: 2013Q4

REPORT INFORMATION
  Report Type: Spontaneous
  Country: FR (occurrence: FR)
  Receive Date: 20131031
  Receipt Date: 20131031
  Transmission Date: 20140711
  Serious: Yes (Other)
  Sender: FDA-Public Use
  Company Number: FR-VERTEX PHARMACEUTICALS INC-2013-010766

PATIENT
  Age: 84 Year
  Sex: Male
  Weight: 66 kg

DRUGS (5)
  1. INCIVO [Suspect]
     Indication: HEPATITIS C
     Dosage: 750 MG, TID
     Route: 048
     Dates: start: 20111114, end: 20120206
  2. PEGASYS [Suspect]
     Indication: HEPATITIS C
     Dosage: DOSAGE FORM: UNSPECIFIED
     Route: 065
     Dates: start: 20111114, end: 20120305
  3. COPEGUS [Suspect]
     Indication: HEPATITIS C
     Dosage: DOSAGE FORM: UNSPECIFIED
     Route: 065
     Dates: start: 20111114, end: 20120217
  4. NEORECORMON [Suspect]
     Indication: ANAEMIA
     Dosage: DOSAGE FORM: UNSPECIFIED
     Route: 065
     Dates: start: 20111114, end: 20120305
  5. TOCO [Suspect]
     Indication: PROPHYLAXIS
     Dosage: 500 MG, BID
     Dates: start: 20110626, end: 20130305

REACTIONS (1)
  - Hepatocellular carcinoma [Unknown]
